FAERS Safety Report 19242670 (Version 2)
Quarter: 2021Q2

REPORT INFORMATION
  Report Type: Spontaneous
  Country: DE (occurrence: DE)
  Receive Date: 20210510
  Receipt Date: 20210616
  Transmission Date: 20210717
  Serious: Yes (Other)
  Sender: FDA-Public Use
  Company Number: DE-CELLTRION INC.-2021DE005021

PATIENT

DRUGS (3)
  1. REMSIMA [Suspect]
     Active Substance: INFLIXIMAB
     Dosage: 400 MG (SECOND CYCLE)/400 MG IN 250 ML SODIUM CHLORIDE
     Route: 042
     Dates: start: 20210303
  2. REMSIMA [Suspect]
     Active Substance: INFLIXIMAB
     Dosage: 400 MG (THIRD CYCLE), EVERY 4 WEEKS/400 MG IN 250 ML SODIUM CHLORIDE
     Route: 042
     Dates: start: 20210331, end: 20210331
  3. REMSIMA [Suspect]
     Active Substance: INFLIXIMAB
     Indication: COLITIS ULCERATIVE
     Dosage: 400 MG (FIRST CYCLE)/400 MG IN 250 ML SODIUM CHLORIDE
     Route: 042
     Dates: start: 20210218

REACTIONS (4)
  - Dermatitis allergic [Recovered/Resolved]
  - Pruritus [Recovered/Resolved]
  - Rash [Recovered/Resolved]
  - Off label use [Unknown]

NARRATIVE: CASE EVENT DATE: 20210331
